FAERS Safety Report 5455053-9 (Version None)
Quarter: 2007Q3

REPORT INFORMATION
  Report Type: 
  Country: None (occurrence: None)
  Receive Date: 20070913
  Receipt Date: 20070502
  Transmission Date: 20080115
  Serious: Yes (Hospitalization)
  Sender: FDA-Public Use
  Company Number: 2007-01281

PATIENT
  Age: 57 Year
  Sex: Male

DRUGS (5)
  1. VELCADE [Suspect]
     Indication: MULTIPLE MYELOMA
  2. DEXAMETHASONE [Suspect]
     Indication: MULTIPLE MYELOMA
     Dosage: 40.00 MG, ORAL
     Route: 048
     Dates: start: 20070312, end: 20070316
  3. CISPLATIN [Suspect]
     Indication: MULTIPLE MYELOMA
     Dosage: 15 MG/M2, INTRAVENOUS
     Route: 042
     Dates: start: 20070312, end: 20070316
  4. ETOPOSIDE [Suspect]
     Indication: MULTIPLE MYELOMA
     Dosage: 40.00 MG/M2, INTRAVENOUS
     Route: 042
     Dates: start: 20070312, end: 20070316
  5. CYCLOPHOSPHAMIDE [Suspect]
     Indication: MULTIPLE MYELOMA
     Dosage: 400.00 MG/M2, INTRAVENOUS
     Route: 042
     Dates: start: 20070312, end: 20070316

REACTIONS (6)
  - ANAEMIA [None]
  - CHILLS [None]
  - FEBRILE BONE MARROW APLASIA [None]
  - PRODUCTIVE COUGH [None]
  - TACHYCARDIA [None]
  - TACHYPNOEA [None]
